FAERS Safety Report 12565436 (Version 1)
Quarter: 2016Q3

REPORT INFORMATION
  Report Type: Spontaneous
  Country: US (occurrence: None)
  Receive Date: 20160715
  Receipt Date: 20160715
  Transmission Date: 20161109
  Serious: Yes (Hospitalization)
  Sender: FDA-Public Use
  Company Number: None

PATIENT
  Age: 86 Year
  Sex: Female

DRUGS (16)
  1. METHOTREXATE 50 MG PER 2 ML TEVA [Suspect]
     Active Substance: METHOTREXATE
     Indication: RHEUMATOID ARTHRITIS
     Route: 058
     Dates: start: 20120621
  2. BIOTIN [Concomitant]
     Active Substance: BIOTIN
  3. QUINAPRIL. [Concomitant]
     Active Substance: QUINAPRIL
  4. SPIRONOLACTONE. [Concomitant]
     Active Substance: SPIRONOLACTONE
  5. METFORMIN [Concomitant]
     Active Substance: METFORMIN HYDROCHLORIDE
  6. SPIRIVA [Concomitant]
     Active Substance: TIOTROPIUM BROMIDE MONOHYDRATE
  7. HYOSCYAMINE. [Concomitant]
     Active Substance: HYOSCYAMINE
  8. VITAMIN D [Concomitant]
     Active Substance: CHOLECALCIFEROL
  9. LEUCOVORIN. [Concomitant]
     Active Substance: LEUCOVORIN
  10. PROAIR HFA [Concomitant]
     Active Substance: ALBUTEROL SULFATE
  11. AMITRIPTYLINE [Concomitant]
     Active Substance: AMITRIPTYLINE
  12. GLIMEPIRIDE. [Concomitant]
     Active Substance: GLIMEPIRIDE
  13. FOLCI ACID [Concomitant]
  14. DULERA [Concomitant]
     Active Substance: FORMOTEROL FUMARATE DIHYDRATE\MOMETASONE FUROATE
  15. FUROSEMIDE. [Concomitant]
     Active Substance: FUROSEMIDE
  16. HCTZM [Concomitant]

REACTIONS (3)
  - Dyspnoea [None]
  - Chronic obstructive pulmonary disease [None]
  - Cardiac failure [None]

NARRATIVE: CASE EVENT DATE: 20160703
